FAERS Safety Report 4476387-0 (Version None)
Quarter: 2004Q4

REPORT INFORMATION
  Report Type: 
  Country: None (occurrence: None)
  Receive Date: 20041016
  Receipt Date: 20041006
  Transmission Date: 20050328
  Serious: Yes (Life-Threatening, Hospitalization, Disabling)
  Sender: FDA-Public Use
  Company Number: US-MERCK-0410USA00966

PATIENT
  Age: 64 Year
  Sex: Male

DRUGS (13)
  1. [THERAPY UNSPECIFIED] [Concomitant]
     Route: 065
  2. [THERAPY UNSPECIFIED] [Concomitant]
     Route: 065
  3. [THERAPY UNSPECIFIED] [Concomitant]
     Indication: SLEEP APNOEA SYNDROME
     Route: 065
  4. [THERAPY UNSPECIFIED] [Concomitant]
     Route: 065
  5. [THERAPY UNSPECIFIED] [Concomitant]
     Route: 065
  6. DILTIAZEM HYDROCHLORIDE [Concomitant]
     Route: 065
  7. GLYBURIDE [Concomitant]
     Route: 065
  8. PRINIVIL [Concomitant]
     Route: 065
  9. METFORMIN [Concomitant]
     Route: 065
  10. METOPROLOL [Concomitant]
     Route: 065
  11. VIOXX [Suspect]
     Indication: INFLAMMATION
     Route: 048
     Dates: start: 20000801, end: 20010101
  12. TRIAMTERENE [Concomitant]
     Route: 065
  13. VITAMINS (UNSPECIFIED) [Concomitant]
     Route: 065

REACTIONS (1)
  - AORTIC VALVE DISEASE [None]
